FAERS Safety Report 17333038 (Version 2)
Quarter: 2020Q1

REPORT INFORMATION
  Report Type: Spontaneous
  Country: CN (occurrence: CN)
  Receive Date: 20200128
  Receipt Date: 20200129
  Transmission Date: 20200409
  Serious: Yes (Other)
  Sender: FDA-Public Use
  Company Number: CN-MACLEODS PHARMACEUTICALS US LTD-MAC2019024757

PATIENT

DRUGS (1)
  1. CELECOXIB 200 MG [Suspect]
     Active Substance: CELECOXIB
     Indication: NEOPLASM PROGRESSION
     Dosage: 0.2 GRAM, BID
     Route: 048
     Dates: start: 201802, end: 201803

REACTIONS (2)
  - Condition aggravated [Recovering/Resolving]
  - Gastric ulcer [Recovering/Resolving]

NARRATIVE: CASE EVENT DATE: 201803
